FAERS Safety Report 5450958-7 (Version None)
Quarter: 2007Q3

REPORT INFORMATION
  Report Type: 
  Country: None (occurrence: None)
  Receive Date: 20070913
  Receipt Date: 20070911
  Transmission Date: 20080115
  Serious: Yes (Hospitalization)
  Sender: FDA-Public Use
  Company Number: FRWYE291311SEP07

PATIENT
  Age: 85 Year
  Sex: Female

DRUGS (7)
  1. EFFEXOR XR [Suspect]
     Indication: DEPRESSION
     Route: 048
     Dates: end: 20070716
  2. COAPROVEL [Concomitant]
     Dosage: 1 DOSE (150MG/12.5MG) PER DAY
     Route: 048
  3. PARACETAMOL [Concomitant]
     Dosage: 1 DOSE - ON DEMAND -
     Route: 048
  4. ASPIRIN [Concomitant]
     Dosage: 75 MG TOTAL DAILY
     Route: 048
  5. DUPHALAC [Concomitant]
     Dosage: 1 DOSE - ON DEMAND -
     Route: 048
  6. TANAKAN [Suspect]
     Route: 048
     Dates: end: 20070716
  7. LORAZEPAM [Concomitant]
     Dosage: UNKNOWN
     Route: 048

REACTIONS (4)
  - CONFUSIONAL STATE [None]
  - FALL [None]
  - GENERAL PHYSICAL HEALTH DETERIORATION [None]
  - HYPONATRAEMIA [None]
